FAERS Safety Report 6994633-6 (Version None)
Quarter: 2010Q3

REPORT INFORMATION
  Report Type: 
  Country: None (occurrence: None)
  Receive Date: 20100915
  Receipt Date: 20100915
  Transmission Date: 20110219
  Serious: Yes (Hospitalization)
  Sender: FDA-Public Use
  Company Number: None

PATIENT
  Age: 51 Year
  Sex: Female
  Weight: 58.9676 kg

DRUGS (2)
  1. ENBREL [Suspect]
     Indication: RHEUMATOID ARTHRITIS
     Dosage: 50 MG WEEKLY SQ
     Route: 058
     Dates: start: 20070601, end: 20100830
  2. METHOTREXATE [Concomitant]

REACTIONS (5)
  - HYPOAESTHESIA [None]
  - IMPAIRED WORK ABILITY [None]
  - LOSS OF PROPRIOCEPTION [None]
  - MILLER FISHER SYNDROME [None]
  - PERIPHERAL SENSORY NEUROPATHY [None]
